FAERS Safety Report 9278975 (Version 1)
Quarter: 2013Q2

REPORT INFORMATION
  Report Type: Spontaneous
  Country: US (occurrence: US)
  Receive Date: 20130508
  Receipt Date: 20130508
  Transmission Date: 20140414
  Serious: Yes (Other)
  Sender: FDA-Public Use
  Company Number: US-JNJFOC-20130416587

PATIENT
  Age: 82 Year
  Sex: Male
  Weight: 77.11 kg

DRUGS (11)
  1. LEVAQUIN [Suspect]
     Indication: ANTIBIOTIC PROPHYLAXIS
     Route: 042
     Dates: start: 20130426
  2. TRAMADOL [Concomitant]
     Indication: PAIN
     Route: 048
  3. NORCO [Concomitant]
     Indication: PAIN
     Dosage: 5/ 32 MG
     Route: 048
  4. PHENOBARBITOL NOS [Concomitant]
     Indication: CONVULSION
     Dosage: IN AM
     Route: 048
  5. SYNTHROID [Concomitant]
     Indication: THYROID DISORDER
     Route: 048
  6. FLONASE [Concomitant]
     Indication: MULTIPLE ALLERGIES
     Route: 045
  7. LORATADINE [Concomitant]
     Indication: MULTIPLE ALLERGIES
     Route: 048
  8. PRAVASTATIN [Concomitant]
     Indication: BLOOD CHOLESTEROL
     Route: 048
  9. IRON SULFATE [Concomitant]
     Route: 048
  10. SINEMET [Concomitant]
     Dosage: 25/ 100 MG
     Route: 048
  11. PHENOBARBITOL NOS [Concomitant]
     Indication: CONVULSION
     Dosage: IN PM
     Route: 048

REACTIONS (1)
  - Supraventricular tachycardia [Unknown]
